FAERS Safety Report 14531875 (Version 2)
Quarter: 2018Q1

REPORT INFORMATION
  Report Type: Spontaneous
  Country: CZ (occurrence: CZ)
  Receive Date: 20180214
  Receipt Date: 20180222
  Transmission Date: 20180509
  Serious: Yes (Other)
  Sender: FDA-Public Use
  Company Number: CZ-SA-2018SA036479

PATIENT
  Age: 54 Year
  Sex: Female

DRUGS (1)
  1. LANTUS [Suspect]
     Active Substance: INSULIN GLARGINE
     Indication: TYPE 1 DIABETES MELLITUS
     Route: 058
     Dates: start: 2005, end: 201512

REACTIONS (8)
  - Glycosylated haemoglobin increased [Recovered/Resolved]
  - Loss of consciousness [Recovered/Resolved]
  - Memory impairment [Unknown]
  - Hypoglycaemia [Recovered/Resolved]
  - Diabetic metabolic decompensation [Recovered/Resolved]
  - Fall [Recovered/Resolved]
  - Lower limb fracture [Recovered/Resolved]
  - Disturbance in attention [Unknown]
